FAERS Safety Report 6157925-9 (Version None)
Quarter: 2009Q2

REPORT INFORMATION
  Report Type: 
  Country: None (occurrence: None)
  Receive Date: 20090417
  Receipt Date: 20090409
  Transmission Date: 20091009
  Serious: Yes (Hospitalization, Other)
  Sender: FDA-Public Use
  Company Number: FR-JNJFOC-20090402725

PATIENT
  Age: 82 Year
  Sex: Male

DRUGS (8)
  1. HALDOL [Suspect]
     Indication: DRUG USE FOR UNKNOWN INDICATION
     Route: 030
  2. LEPTICUR [Suspect]
     Route: 048
  3. LEPTICUR [Suspect]
     Indication: DRUG USE FOR UNKNOWN INDICATION
     Route: 048
  4. SERESTA [Suspect]
     Route: 048
  5. SERESTA [Suspect]
     Indication: DRUG USE FOR UNKNOWN INDICATION
     Route: 048
  6. THERALENE [Suspect]
     Indication: DRUG USE FOR UNKNOWN INDICATION
     Route: 048
  7. KARDEGIC [Concomitant]
     Route: 065
  8. TENORMIN [Concomitant]

REACTIONS (1)
  - DISORIENTATION [None]
